FAERS Safety Report 22279920 (Version 1)
Quarter: 2023Q2

REPORT INFORMATION
  Report Type: Spontaneous
  Country: FR (occurrence: FR)
  Receive Date: 20230503
  Receipt Date: 20230503
  Transmission Date: 20230722
  Serious: Yes (Hospitalization)
  Sender: FDA-Public Use
  Company Number: None

PATIENT
  Age: 81 Year
  Sex: Male
  Weight: 77 kg

DRUGS (2)
  1. LINEZOLID [Suspect]
     Active Substance: LINEZOLID
     Indication: Urinary tract infection
     Dosage: 1200 MILLIGRAM, QD (600 MG X2/D)
     Route: 048
     Dates: start: 20230325, end: 20230401
  2. CEFAZOLIN [Suspect]
     Active Substance: CEFAZOLIN
     Indication: Bacteraemia
     Dosage: UNSPECIFIED
     Route: 042
     Dates: start: 20230324, end: 20230408

REACTIONS (1)
  - Reticulocytopenia [Unknown]

NARRATIVE: CASE EVENT DATE: 20230405
